FAERS Safety Report 7366068-8 (Version None)
Quarter: 2011Q1

REPORT INFORMATION
  Report Type: 
  Country: None (occurrence: None)
  Receive Date: 20110322
  Receipt Date: 20110308
  Transmission Date: 20110831
  Serious: Yes (Hospitalization)
  Sender: FDA-Public Use
  Company Number: US-JNJFOC-20080202188

PATIENT
  Sex: Male
  Weight: 21 kg

DRUGS (4)
  1. ORAL SUPPLEMENTS [Concomitant]
     Route: 065
  2. INFLIXIMAB [Suspect]
     Indication: COLITIS ULCERATIVE
     Dosage: 16 DOSES RECEIVED
     Route: 042
  3. URSODIOL [Concomitant]
     Route: 065
  4. INFLIXIMAB [Suspect]
     Indication: COLITIS
     Dosage: 16 DOSES RECEIVED
     Route: 042

REACTIONS (1)
  - POST PROCEDURAL HAEMORRHAGE [None]
